FAERS Safety Report 4679753-3 (Version None)
Quarter: 2005Q2

REPORT INFORMATION
  Report Type: 
  Country: None (occurrence: None)
  Receive Date: 20050531
  Receipt Date: 20050516
  Transmission Date: 20051028
  Serious: Yes (Hospitalization)
  Sender: FDA-Public Use
  Company Number: 2004224589FR

PATIENT
  Age: 47 Year
  Sex: Male

DRUGS (5)
  1. CELEBREX [Suspect]
     Indication: ILL-DEFINED DISORDER
     Dosage: ORAL
     Route: 048
     Dates: start: 20040510, end: 20040522
  2. PREDNISONE [Concomitant]
  3. ALIMEMAZINE TARTRATE (ALIMEMAZINE TARTRATE) [Concomitant]
  4. TETRAZEPAM (TETRAZEPAM) [Concomitant]
  5. RABEPRAZOLE SODIUM [Concomitant]

REACTIONS (5)
  - CHILLS [None]
  - PYREXIA [None]
  - RASH ERYTHEMATOUS [None]
  - RASH MACULO-PAPULAR [None]
  - TOXIC SKIN ERUPTION [None]
